FAERS Safety Report 12244679 (Version 1)
Quarter: 2016Q2

REPORT INFORMATION
  Report Type: Spontaneous
  Country: US (occurrence: None)
  Receive Date: 20160406
  Receipt Date: 20160406
  Transmission Date: 20160815
  Serious: Yes (Disabling)
  Sender: FDA-Public Use
  Company Number: None

PATIENT
  Sex: Female
  Weight: 68.04 kg

DRUGS (9)
  1. GENERIC DYAZIDE [Concomitant]
     Active Substance: HYDROCHLOROTHIAZIDE\TRIAMTERENE
  2. GINGER. [Concomitant]
     Active Substance: GINGER
  3. CRANBERRY CAPSULES [Concomitant]
  4. CALCIUM PLUS D3 [Concomitant]
  5. POTASSIUM [Concomitant]
     Active Substance: POTASSIUM
  6. LISINIPRIL 5MG [Concomitant]
     Active Substance: LISINOPRIL
  7. FOSAMAX [Suspect]
     Active Substance: ALENDRONATE SODIUM
     Indication: OSTEOPOROSIS
     Dosage: FOSAMAX?1 CAPSULE (S) WEEKLY?TAKEN BY MOUTH
     Route: 048
  8. SIMVASTATIN. [Concomitant]
     Active Substance: SIMVASTATIN
  9. CULTURELLE [Concomitant]
     Active Substance: LACTOBACILLUS RHAMNOSUS

REACTIONS (1)
  - Vertigo [None]
